FAERS Safety Report 7536755-7 (Version None)
Quarter: 2011Q2

REPORT INFORMATION
  Report Type: 
  Country: None (occurrence: None)
  Receive Date: 20110609
  Receipt Date: 20110530
  Transmission Date: 20111010
  Serious: Yes (Congenital Anomaly)
  Sender: FDA-Public Use
  Company Number: D0071575A

PATIENT
  Sex: Male

DRUGS (3)
  1. LAMOTRIGINE [Suspect]
     Dosage: 200MG PER DAY
     Route: 064
  2. LAMOTRIGINE [Suspect]
     Dosage: 400MG PER DAY
     Route: 064
  3. LAMICTAL [Suspect]
     Dosage: 200MG PER DAY
     Route: 064

REACTIONS (2)
  - HYPOSPADIAS [None]
  - DRUG EXPOSURE DURING PREGNANCY [None]
